FAERS Safety Report 4709531-8 (Version None)
Quarter: 2005Q3

REPORT INFORMATION
  Report Type: 
  Country: None (occurrence: None)
  Receive Date: 20050706
  Receipt Date: 20050623
  Transmission Date: 20060218
  Serious: Yes (Hospitalization, Disabling)
  Sender: FDA-Public Use
  Company Number: 2005049624

PATIENT
  Sex: Female
  Weight: 2.65 kg

DRUGS (6)
  1. HALCION [Suspect]
     Indication: DEPRESSION
     Route: 064
  2. ETIZOLAM (ETIZOLAM) [Suspect]
     Indication: DEPRESSION
     Route: 064
  3. NITRAZEPAM [Suspect]
     Indication: DEPRESSION
     Route: 064
  4. LORAZEPAM [Suspect]
     Indication: DEPRESSION
     Route: 064
  5. LEVOMEPROMAZINE (LEVOMEPROMAZINE) [Suspect]
     Indication: DEPRESSION
     Route: 064
  6. ZOLPIDEM TARTRATE [Suspect]
     Indication: DEPRESSION
     Route: 064

REACTIONS (7)
  - DEHYDRATION [None]
  - DRUG EXPOSURE DURING PREGNANCY [None]
  - DRUG WITHDRAWAL SYNDROME NEONATAL [None]
  - FEEDING DISORDER NEONATAL [None]
  - IRRITABILITY [None]
  - NEONATAL DISORDER [None]
  - VOMITING NEONATAL [None]
